FAERS Safety Report 13913234 (Version 1)
Quarter: 2017Q3

REPORT INFORMATION
  Report Type: Spontaneous
  Country: US (occurrence: US)
  Receive Date: 20170828
  Receipt Date: 20170828
  Transmission Date: 20171127
  Serious: No
  Sender: FDA-Public Use
  Company Number: US-ROCHE-1124046

PATIENT
  Age: 7 Year
  Sex: Female
  Weight: 20.9 kg

DRUGS (1)
  1. NUTROPIN AQ [Suspect]
     Active Substance: SOMATROPIN
     Indication: TURNER^S SYNDROME
     Route: 058
     Dates: start: 19950113

REACTIONS (3)
  - Nausea [Unknown]
  - Migraine [Unknown]
  - Photophobia [Unknown]

NARRATIVE: CASE EVENT DATE: 199806
